FAERS Safety Report 24204360 (Version 2)
Quarter: 2024Q4

REPORT INFORMATION
  Report Type: Report from Study
  Country: US (occurrence: US)
  Receive Date: 20240813
  Receipt Date: 20241105
  Transmission Date: 20250114
  Serious: Yes (Hospitalization, Disabling)
  Sender: ROCHE
  Company Number: US-ROCHE-10000033817

PATIENT
  Age: 79 Year
  Sex: Female
  Weight: 82.1 kg

DRUGS (14)
  1. RITUXAN [Suspect]
     Active Substance: RITUXIMAB
     Indication: Rheumatoid arthritis
     Dosage: INFUSE 1000 MG IV DAY 0 AND DAY 14
     Route: 042
     Dates: start: 2023
  2. DUO [Concomitant]
     Dosage: 0.5 MG/ 3MG PER 3ML
     Route: 055
  3. BUDESONIDE [Concomitant]
     Active Substance: BUDESONIDE
     Dosage: 0.5 MG/2 ML
     Route: 055
  4. ARFORMOTEROL TARTRATE [Concomitant]
     Active Substance: ARFORMOTEROL TARTRATE
     Dosage: 15 MG/2 ML
     Route: 055
  5. OXYGEN [Concomitant]
     Active Substance: OXYGEN
     Indication: Chronic obstructive pulmonary disease
     Dosage: CONTINUOUS
     Route: 055
  6. ASPIRIN [Concomitant]
     Active Substance: ASPIRIN
  7. PROPRANOLOL [Concomitant]
     Active Substance: PROPRANOLOL HYDROCHLORIDE
  8. Furosamid [Concomitant]
  9. TRAMADOL [Concomitant]
     Active Substance: TRAMADOL
  10. ATORVASTATIN [Concomitant]
     Active Substance: ATORVASTATIN
  11. LEVOTHYROXINE [Concomitant]
     Active Substance: LEVOTHYROXINE
  12. ALBUTEROL [Concomitant]
     Active Substance: ALBUTEROL
  13. LEFLUNOMIDE [Concomitant]
     Active Substance: LEFLUNOMIDE
     Route: 048
     Dates: start: 20240407
  14. TRELEGY ELLIPTA [Concomitant]
     Active Substance: FLUTICASONE FUROATE\UMECLIDINIUM BROMIDE\VILANTEROL TRIFENATATE

REACTIONS (4)
  - COVID-19 [Recovering/Resolving]
  - Pneumonia [Unknown]
  - Chronic obstructive pulmonary disease [Not Recovered/Not Resolved]
  - Oxygen saturation decreased [Not Recovered/Not Resolved]

NARRATIVE: CASE EVENT DATE: 20240429
